FAERS Safety Report 9034748 (Version 1)
Quarter: 2013Q1

REPORT INFORMATION
  Report Type: Spontaneous
  Country: US (occurrence: US)
  Receive Date: 20130128
  Receipt Date: 20130128
  Transmission Date: 20140127
  Serious: Yes (Other)
  Sender: FDA-Public Use
  Company Number: US-TEVA-382209USA

PATIENT
  Sex: Female
  Weight: 99.88 kg

DRUGS (1)
  1. PARAGARD 380A [Suspect]
     Indication: CONTRACEPTION
     Route: 015
     Dates: start: 200705

REACTIONS (7)
  - Pregnancy with contraceptive device [Recovered/Resolved]
  - Diverticulitis [Unknown]
  - Device dislocation [Recovered/Resolved]
  - Device expulsion [Recovered/Resolved]
  - Pain [Not Recovered/Not Resolved]
  - Abdominal distension [Not Recovered/Not Resolved]
  - Live birth [Unknown]
